FAERS Safety Report 25115788 (Version 2)
Quarter: 2025Q2

REPORT INFORMATION
  Report Type: Spontaneous
  Country: JP (occurrence: JP)
  Receive Date: 20250325
  Receipt Date: 20250410
  Transmission Date: 20250716
  Serious: No
  Sender: GLAXOSMITHKLINE
  Company Number: JP-GSKNCCC-Case-02275465_AE-95534

PATIENT

DRUGS (1)
  1. FLUTICASONE PROPIONATE [Suspect]
     Active Substance: FLUTICASONE PROPIONATE
     Indication: Eosinophilic oesophagitis

REACTIONS (2)
  - Product use in unapproved indication [Unknown]
  - Off label use [Unknown]
